FAERS Safety Report 12722083 (Version 3)
Quarter: 2017Q3

REPORT INFORMATION
  Report Type: Spontaneous
  Country: SE (occurrence: SE)
  Receive Date: 20160907
  Receipt Date: 20170713
  Transmission Date: 20171127
  Serious: Yes (Other)
  Sender: FDA-Public Use
  Company Number: SE-JNJFOC-20160725730

PATIENT
  Sex: Male

DRUGS (2)
  1. YONDELIS [Suspect]
     Active Substance: TRABECTEDIN
     Indication: SOFT TISSUE SARCOMA
     Dosage: CYCLE 6
     Route: 042
     Dates: start: 20160608
  2. YONDELIS [Suspect]
     Active Substance: TRABECTEDIN
     Indication: SOFT TISSUE SARCOMA
     Dosage: CYCLE 1, CYCLE 2 ON 16-MAR-2016, CYCLE 5 ON 19-MAY-2016
     Route: 042
     Dates: start: 20160223

REACTIONS (1)
  - Catheter site erythema [Recovered/Resolved]
